FAERS Safety Report 7636037-9 (Version None)
Quarter: 2011Q3

REPORT INFORMATION
  Report Type: 
  Country: None (occurrence: None)
  Receive Date: 20110726
  Receipt Date: 20110620
  Transmission Date: 20111222
  Serious: Yes (Death, Other)
  Sender: FDA-Public Use
  Company Number: US-BAXTER-2009BH001619

PATIENT
  Sex: Female

DRUGS (11)
  1. HEPARIN SODIUM INJECTION [Suspect]
     Route: 042
     Dates: start: 20061229, end: 20061230
  2. HEPARIN SODIUM INJECTION [Suspect]
     Route: 042
     Dates: start: 20061228
  3. HEPARIN SODIUM INJECTION [Suspect]
     Route: 042
     Dates: start: 20070118, end: 20070118
  4. HEPARIN SODIUM 1,000 UNITS AND SODIUM CHLORIDE 0.9% [Suspect]
     Indication: PRODUCT USED FOR UNKNOWN INDICATION
     Route: 065
     Dates: start: 20061230
  5. HEPARIN SODIUM INJECTION [Suspect]
     Route: 042
     Dates: start: 20070109, end: 20070111
  6. HEPARIN SODIUM INJECTION [Suspect]
     Route: 042
     Dates: start: 20070116, end: 20070116
  7. HEPARIN SODIUM 1,000 UNITS AND SODIUM CHLORIDE 0.9% [Suspect]
     Route: 065
     Dates: start: 20070110
  8. HEPARIN SODIUM INJECTION [Suspect]
     Route: 042
     Dates: start: 20051228
  9. HEPARIN SODIUM 1,000 UNITS AND SODIUM CHLORIDE 0.9% [Suspect]
     Route: 065
     Dates: start: 20070111
  10. HEPARIN SODIUM INJECTION [Suspect]
     Indication: PRODUCT USED FOR UNKNOWN INDICATION
     Route: 042
     Dates: start: 20061228
  11. HEPARIN SODIUM 1,000 UNITS AND SODIUM CHLORIDE 0.9% [Suspect]
     Route: 065
     Dates: start: 20070109

REACTIONS (5)
  - MULTI-ORGAN FAILURE [None]
  - SKIN NECROSIS [None]
  - LEG AMPUTATION [None]
  - HEPARIN-INDUCED THROMBOCYTOPENIA [None]
  - THROMBOSIS [None]
